FAERS Safety Report 10580152 (Version 4)
Quarter: 2015Q1

REPORT INFORMATION
  Report Type: Spontaneous
  Country: US (occurrence: US)
  Receive Date: 20141112
  Receipt Date: 20150330
  Transmission Date: 20150720
  Serious: Yes (Hospitalization, Other)
  Sender: FDA-Public Use
  Company Number: PHHY2014US056489

PATIENT
  Age: 18 Year
  Sex: Male

DRUGS (16)
  1. LEVOTHYROXINE [Suspect]
     Active Substance: LEVOTHYROXINE
     Indication: PRODUCT USED FOR UNKNOWN INDICATION
     Route: 065
  2. LIORESAL [Suspect]
     Active Substance: BACLOFEN
     Dosage: 1004 UG, QD
     Route: 037
     Dates: start: 20140902
  3. SENOKOT [Suspect]
     Active Substance: SENNOSIDES
     Indication: PRODUCT USED FOR UNKNOWN INDICATION
     Dosage: UNK
     Route: 065
  4. MIRALAX [Suspect]
     Active Substance: POLYETHYLENE GLYCOL 3350
     Indication: PRODUCT USED FOR UNKNOWN INDICATION
     Route: 065
  5. LIORESAL [Suspect]
     Active Substance: BACLOFEN
     Dosage: 877 UG, QD
     Route: 037
     Dates: start: 20140414
  6. LIORESAL [Suspect]
     Active Substance: BACLOFEN
     Dosage: 677 UG, QD
     Route: 037
     Dates: start: 20140508
  7. AMANTADINE [Suspect]
     Active Substance: AMANTADINE
     Indication: PRODUCT USED FOR UNKNOWN INDICATION
     Route: 065
  8. LIORESAL [Suspect]
     Active Substance: BACLOFEN
     Dosage: 737 UG, QD
     Route: 037
     Dates: start: 20140430
  9. LIORESAL [Suspect]
     Active Substance: BACLOFEN
     Dosage: 894.8 UG, QD
     Route: 037
     Dates: start: 20140516
  10. OMEPRAZOLE. [Suspect]
     Active Substance: OMEPRAZOLE
     Indication: PRODUCT USED FOR UNKNOWN INDICATION
     Route: 065
  11. LIORESAL [Suspect]
     Active Substance: BACLOFEN
     Dosage: 894.8 UG, QD
     Route: 037
     Dates: start: 20140620
  12. CYMBALTA [Suspect]
     Active Substance: DULOXETINE HYDROCHLORIDE
     Indication: PRODUCT USED FOR UNKNOWN INDICATION
     Route: 065
  13. LIORESAL [Suspect]
     Active Substance: BACLOFEN
     Indication: MUSCLE SPASTICITY
     Dosage: 835 UG, QD
     Route: 037
     Dates: start: 20140411
  14. LIORESAL [Suspect]
     Active Substance: BACLOFEN
     Dosage: 921 UG, QD
     Route: 037
     Dates: start: 20140418
  15. NEURONTIN [Suspect]
     Active Substance: GABAPENTIN
     Indication: PRODUCT USED FOR UNKNOWN INDICATION
     Dosage: UNK
     Route: 065
  16. MAGNESIUM OXIDE. [Suspect]
     Active Substance: MAGNESIUM OXIDE
     Indication: PRODUCT USED FOR UNKNOWN INDICATION
     Route: 065

REACTIONS (14)
  - Agitation [Recovering/Resolving]
  - Implant site extravasation [Recovering/Resolving]
  - Muscle tightness [Recovering/Resolving]
  - Hypertonia [Recovering/Resolving]
  - Vomiting [Recovered/Resolved]
  - Muscle twitching [Recovering/Resolving]
  - Pruritus [Recovering/Resolving]
  - Drug withdrawal syndrome [Recovering/Resolving]
  - Implant site swelling [Recovering/Resolving]
  - Lethargy [Recovering/Resolving]
  - Dehydration [Recovering/Resolving]
  - Muscle spasticity [Recovering/Resolving]
  - Therapeutic response decreased [Recovering/Resolving]
  - No therapeutic response [Recovering/Resolving]

NARRATIVE: CASE EVENT DATE: 20140411
